FAERS Safety Report 13212902 (Version 1)
Quarter: 2017Q1

REPORT INFORMATION
  Report Type: Spontaneous
  Country: US (occurrence: US)
  Receive Date: 20170209
  Receipt Date: 20170209
  Transmission Date: 20170428
  Serious: No
  Sender: FDA-Public Use
  Company Number: US-ALLERGAN-1672414US

PATIENT
  Sex: Male
  Weight: 92.8 kg

DRUGS (2)
  1. BOTOX [Suspect]
     Active Substance: ONABOTULINUMTOXINA
     Indication: HEADACHE
     Dosage: 85 UNITS, SINGLE
     Route: 030
     Dates: start: 201511, end: 201511
  2. BOTOX [Suspect]
     Active Substance: ONABOTULINUMTOXINA
     Indication: TRIGEMINAL NERVE DISORDER

REACTIONS (3)
  - Drug ineffective for unapproved indication [Unknown]
  - Off label use [Unknown]
  - Drug ineffective [Unknown]
